FAERS Safety Report 4823381-3 (Version None)
Quarter: 2005Q4

REPORT INFORMATION
  Report Type: 
  Country: None (occurrence: None)
  Receive Date: 20051107
  Receipt Date: 20051104
  Transmission Date: 20060501
  Serious: Yes (Hospitalization)
  Sender: FDA-Public Use
  Company Number: HQWYE230925OCT05

PATIENT
  Age: 72 Year
  Sex: Female

DRUGS (2)
  1. TAZONAM (PIPERACILLIN/TAZOBACTAM, INJECTION) [Suspect]
     Indication: ARTERIAL BYPASS OPERATION
     Dosage: 4.5 G 3X PER 1 DAY
  2. TAZONAM (PIPERACILLIN/TAZOBACTAM, INJECTION) [Suspect]
     Indication: TOE AMPUTATION
     Dosage: 4.5 G 3X PER 1 DAY

REACTIONS (1)
  - IMPAIRED HEALING [None]
